FAERS Safety Report 9521372 (Version 3)
Quarter: 2014Q2

REPORT INFORMATION
  Report Type: Spontaneous
  Country: US (occurrence: US)
  Receive Date: 20130913
  Receipt Date: 20140502
  Transmission Date: 20141212
  Serious: Yes (Hospitalization, Congenital Anomaly, Other)
  Sender: FDA-Public Use
  Company Number: US-JNJFOC-20120802668

PATIENT
  Sex: Male

DRUGS (5)
  1. TOPAMAX [Suspect]
     Indication: FOETAL EXPOSURE DURING PREGNANCY
     Route: 064
  2. SEROQUEL [Suspect]
     Indication: SCHIZOAFFECTIVE DISORDER
     Route: 064
  3. ALBUTEROL [Suspect]
     Indication: PRODUCT USED FOR UNKNOWN INDICATION
     Route: 064
  4. MACROBID (NITROFURANTOIN) [Suspect]
     Indication: PRODUCT USED FOR UNKNOWN INDICATION
     Route: 064
  5. PRENATAL VITAMINS [Concomitant]
     Indication: PREGNANCY
     Route: 065

REACTIONS (5)
  - Cleft lip and palate [Unknown]
  - Velopharyngeal incompetence [Unknown]
  - Otitis media chronic [Unknown]
  - Macrosomia [Unknown]
  - Emotional disorder [Unknown]
